FAERS Safety Report 16248079 (Version 2)
Quarter: 2019Q2

REPORT INFORMATION
  Report Type: Report from Study
  Country: JP (occurrence: JP)
  Receive Date: 20190428
  Receipt Date: 20190627
  Transmission Date: 20190711
  Serious: Yes (Other)
  Sender: FDA-Public Use
  Company Number: PHJP2019JP001588

PATIENT
  Age: 70 Year
  Sex: Male
  Weight: 69 kg

DRUGS (3)
  1. TALION [Concomitant]
     Indication: PSORIASIS
     Dosage: 20 MG, UNK
     Route: 048
  2. COSENTYX [Suspect]
     Active Substance: SECUKINUMAB
     Indication: PSORIASIS
     Dosage: 300 MG, QW
     Route: 058
     Dates: start: 20170816, end: 20170913
  3. COSENTYX [Suspect]
     Active Substance: SECUKINUMAB
     Dosage: 300 MG, Q4W
     Route: 058
     Dates: start: 20171011, end: 20180228

REACTIONS (7)
  - Toxic skin eruption [Recovering/Resolving]
  - Pruritus generalised [Recovering/Resolving]
  - Papule [Unknown]
  - Lymphocytic infiltration [Unknown]
  - Generalised erythema [Recovering/Resolving]
  - Eosinophilia [Unknown]
  - Apoptosis [Unknown]

NARRATIVE: CASE EVENT DATE: 20180324
